FAERS Safety Report 18229937 (Version 2)
Quarter: 2020Q3

REPORT INFORMATION
  Report Type: Spontaneous
  Country: SA (occurrence: SA)
  Receive Date: 20200903
  Receipt Date: 20200912
  Transmission Date: 20201103
  Serious: Yes (Other)
  Sender: FDA-Public Use
  Company Number: SA-NOVOPROD-750045

PATIENT
  Age: 42 Year
  Sex: Female

DRUGS (2)
  1. FOLIC ACID. [Concomitant]
     Active Substance: FOLIC ACID
     Dosage: UNK
     Route: 065
  2. NOVORAPID [Suspect]
     Active Substance: INSULIN ASPART
     Indication: TYPE 2 DIABETES MELLITUS
     Dosage: 30 IU, QD
     Route: 065
     Dates: start: 20180402

REACTIONS (2)
  - Maternal exposure during pregnancy [Recovered/Resolved]
  - Abortion [Recovered/Resolved]

NARRATIVE: CASE EVENT DATE: 20180415
